FAERS Safety Report 9239066 (Version 2)
Quarter: 2013Q2

REPORT INFORMATION
  Report Type: Spontaneous
  Country: JP (occurrence: JP)
  Receive Date: 20130418
  Receipt Date: 20130506
  Transmission Date: 20140414
  Serious: Yes (Hospitalization, Other)
  Sender: FDA-Public Use
  Company Number: JP-AMGEN-JPNSP2013024825

PATIENT
  Age: 65 Year
  Sex: Female
  Weight: 37.2 kg

DRUGS (16)
  1. ENBREL [Suspect]
     Indication: RHEUMATOID ARTHRITIS
     Dosage: 50 MG, WEEKLY
     Route: 058
     Dates: start: 20121213, end: 20130307
  2. METOLATE [Concomitant]
     Indication: RHEUMATOID ARTHRITIS
     Dosage: 4 MG, WEEKLY
     Route: 048
     Dates: start: 2001, end: 2004
  3. METOLATE [Concomitant]
     Dosage: 6 MG, WEEKLY
     Route: 048
     Dates: start: 2004, end: 2007
  4. METOLATE [Concomitant]
     Dosage: 8 MG, WEEKLY
     Route: 048
     Dates: start: 2007, end: 2009
  5. METOLATE [Concomitant]
     Dosage: 10 MG, WEEKLY
     Route: 048
     Dates: start: 200905
  6. METOLATE [Concomitant]
     Dosage: 8 MG, WEEKLY
     Route: 048
     Dates: start: 200907
  7. METOLATE [Concomitant]
     Dosage: 9 MG, WEEKLY
     Route: 048
     Dates: start: 201104
  8. METHYCOBAL [Concomitant]
     Indication: NEUROPATHY PERIPHERAL
     Dosage: 500 UG, 3X/DAY
     Route: 048
     Dates: start: 20050210, end: 20130321
  9. CINAL [Concomitant]
     Indication: NEUROPATHY PERIPHERAL
     Dosage: 200 MG, 3X/DAY
     Route: 048
     Dates: start: 20050310, end: 20130321
  10. VITAMEDIN                          /00176001/ [Concomitant]
     Indication: NEUROPATHY PERIPHERAL
     Dosage: 25 MG, 3X/DAY
     Route: 048
     Dates: start: 20050310, end: 20130321
  11. GASMOTIN [Concomitant]
     Indication: GASTRITIS
     Dosage: 5 MG, 3X/DAY
     Route: 048
     Dates: start: 20050210, end: 20130321
  12. PARIET [Concomitant]
     Indication: GASTRITIS
     Dosage: 10 MG, 1X/DAY
     Route: 048
     Dates: start: 20050210
  13. BIOFERMIN                          /00275501/ [Concomitant]
     Indication: ENTEROCOLITIS
     Dosage: 1 G, 3X/DAY
     Route: 048
     Dates: start: 20060228, end: 20130321
  14. FOLIAMIN [Concomitant]
     Indication: FOLATE DEFICIENCY
     Dosage: 10 MG, WEEKLY
     Route: 048
     Dates: start: 20060419
  15. MAGMITT [Concomitant]
     Indication: CONSTIPATION
     Dosage: 330 MG, 5X/DAY
     Route: 048
     Dates: start: 20051227
  16. FOSAMAC [Concomitant]
     Indication: OSTEOPOROSIS
     Dosage: 35 MG, WEEKLY
     Route: 048
     Dates: start: 20050210

REACTIONS (1)
  - Interstitial lung disease [Recovered/Resolved]
